FAERS Safety Report 5287064-0 (Version None)
Quarter: 2007Q2

REPORT INFORMATION
  Report Type: 
  Country: None (occurrence: None)
  Receive Date: 20070404
  Receipt Date: 20070323
  Transmission Date: 20071010
  Serious: Yes (Hospitalization)
  Sender: FDA-Public Use
  Company Number: BE-PFIZER INC-2006117471

PATIENT
  Sex: Female

DRUGS (17)
  1. SU-011,248 [Suspect]
     Indication: METASTATIC RENAL CELL CARCINOMA
     Route: 048
     Dates: start: 20060112, end: 20060517
  2. SU-011,248 [Suspect]
     Route: 048
  3. FUROSEMIDE [Concomitant]
     Route: 048
  4. AMLOR [Concomitant]
     Route: 048
  5. BISOPROLOL [Concomitant]
     Route: 048
     Dates: start: 20060111
  6. DIOVAN [Concomitant]
     Route: 048
     Dates: start: 20050101
  7. PRAVASTATIN [Concomitant]
     Route: 048
     Dates: start: 20050101
  8. ZOLPIDEM [Concomitant]
     Route: 048
     Dates: start: 20050101
  9. ELTHYRONE [Concomitant]
     Route: 048
     Dates: start: 20060209
  10. ESOMEPRAZOLE MAGNESIUM [Concomitant]
     Route: 048
     Dates: start: 20060323
  11. KEPPRA [Concomitant]
     Route: 048
     Dates: start: 20060901
  12. DEPAKENE [Concomitant]
     Route: 048
     Dates: start: 20060901
  13. DEPAKENE [Concomitant]
     Route: 042
     Dates: start: 20060901
  14. ASAFLOW [Concomitant]
     Route: 048
     Dates: start: 20060921
  15. ZANTAC [Concomitant]
     Route: 048
     Dates: start: 20060504
  16. INDAPAMIDE [Concomitant]
     Route: 048
     Dates: start: 20050921
  17. LODIXAL [Concomitant]
     Route: 048
     Dates: start: 20050921

REACTIONS (3)
  - CAROTID ARTERY THROMBOSIS [None]
  - PARAESTHESIA [None]
  - SENSORY LOSS [None]
